FAERS Safety Report 6685826-6 (Version None)
Quarter: 2010Q2

REPORT INFORMATION
  Report Type: 
  Country: None (occurrence: None)
  Receive Date: 20100419
  Receipt Date: 20100408
  Transmission Date: 20101027
  Serious: Yes (Other)
  Sender: FDA-Public Use
  Company Number: US-JNJFOC-20100402942

PATIENT
  Sex: Female
  Weight: 74.39 kg

DRUGS (2)
  1. FENTANYL CITRATE [Suspect]
     Indication: CANCER PAIN
     Route: 062
  2. MANY OTHER UNSPECIFIED MEDICATIONS [Concomitant]
     Route: 065

REACTIONS (2)
  - MALIGNANT SOFT TISSUE NEOPLASM [None]
  - PAIN [None]
